FAERS Safety Report 20675279 (Version 8)
Quarter: 2023Q4

REPORT INFORMATION
  Report Type: Spontaneous
  Country: US (occurrence: US)
  Receive Date: 20220405
  Receipt Date: 20231226
  Transmission Date: 20240110
  Serious: Yes (Hospitalization, Other)
  Sender: FDA-Public Use
  Company Number: US-PFIZER INC-202101212050

PATIENT
  Age: 79 Year
  Sex: Female

DRUGS (5)
  1. IBRANCE [Suspect]
     Active Substance: PALBOCICLIB
     Indication: Breast cancer metastatic
     Dosage: DAILY FOR 21 DAYS, THEN INCREASE THE REST PERIOD TO 10 DAYS
     Route: 048
  2. IBRANCE [Suspect]
     Active Substance: PALBOCICLIB
     Dosage: DAILY, TWO WEEKS ON TWO WEEKS OFF
     Route: 048
  3. IBRANCE [Suspect]
     Active Substance: PALBOCICLIB
     Dosage: (PO (125 QD) D1- 21 Q28D)
     Route: 048
     Dates: start: 20230628
  4. FASLODEX [Concomitant]
     Active Substance: FULVESTRANT
     Indication: Breast cancer metastatic
     Dosage: UNK, (IM(500)D1)
     Route: 030
  5. XGEVA [Concomitant]
     Active Substance: DENOSUMAB
     Dosage: UNK, MONTHLY

REACTIONS (46)
  - Neutropenic sepsis [Unknown]
  - COVID-19 [Unknown]
  - Abdominal pain [Not Recovered/Not Resolved]
  - Dyspnoea [Recovering/Resolving]
  - Neutropenia [Unknown]
  - Leukopenia [Unknown]
  - Neuropathy peripheral [Unknown]
  - Streptococcal bacteraemia [Unknown]
  - Abdominal distension [Not Recovered/Not Resolved]
  - Decreased appetite [Unknown]
  - Dry skin [Unknown]
  - Gastrointestinal pain [Unknown]
  - Breath sounds abnormal [Unknown]
  - Wheezing [Unknown]
  - Pleural effusion [Unknown]
  - Anaemia [Unknown]
  - Musculoskeletal chest pain [Unknown]
  - Back pain [Unknown]
  - Hernia [Unknown]
  - Musculoskeletal discomfort [Unknown]
  - Lymphopenia [Unknown]
  - Abdominal hernia [Unknown]
  - Fluid retention [Recovering/Resolving]
  - Rales [Unknown]
  - Pulmonary pain [Recovered/Resolved]
  - Abdominal tenderness [Unknown]
  - Gout [Unknown]
  - Abdominal mass [Unknown]
  - Dyschezia [Unknown]
  - Constipation [Unknown]
  - Nausea [Unknown]
  - Bladder dilatation [Unknown]
  - Diarrhoea [Unknown]
  - Fatigue [Unknown]
  - Asthenia [Not Recovered/Not Resolved]
  - Insomnia [Unknown]
  - Pain in extremity [Unknown]
  - White blood cell count decreased [Unknown]
  - Illness [Unknown]
  - Pallor [Unknown]
  - Oedema peripheral [Unknown]
  - Tendonitis [Unknown]
  - Neoplasm progression [Unknown]
  - Off label use [Unknown]
  - Product use issue [Unknown]
  - Product prescribing error [Unknown]

NARRATIVE: CASE EVENT DATE: 20230216
